FAERS Safety Report 22953419 (Version 3)
Quarter: 2024Q1

REPORT INFORMATION
  Report Type: Report from Study
  Country: JP (occurrence: JP)
  Receive Date: 20230918
  Receipt Date: 20240116
  Transmission Date: 20240410
  Serious: Yes (Other)
  Sender: FDA-Public Use
  Company Number: JP-ASTELLAS-2022JP007828

PATIENT
  Age: 78 Year
  Sex: Female
  Weight: 55.5 kg

DRUGS (12)
  1. ENFORTUMAB VEDOTIN [Suspect]
     Active Substance: ENFORTUMAB VEDOTIN
     Indication: Bladder cancer
     Route: 041
     Dates: start: 20220310, end: 20220421
  2. ENFORTUMAB VEDOTIN [Suspect]
     Active Substance: ENFORTUMAB VEDOTIN
     Route: 041
     Dates: start: 20220512, end: 20220915
  3. ENFORTUMAB VEDOTIN [Suspect]
     Active Substance: ENFORTUMAB VEDOTIN
     Route: 041
     Dates: start: 20221110, end: 20221124
  4. ENFORTUMAB VEDOTIN [Suspect]
     Active Substance: ENFORTUMAB VEDOTIN
     Route: 041
     Dates: start: 20221215, end: 202303
  5. ENFORTUMAB VEDOTIN [Suspect]
     Active Substance: ENFORTUMAB VEDOTIN
     Route: 041
     Dates: end: 20230720
  6. GEMCITABINE HYDROCHLORIDE [Suspect]
     Active Substance: GEMCITABINE HYDROCHLORIDE
     Indication: Bladder cancer
     Dosage: UNK UNK, UNKNOWN FREQ.
     Route: 065
     Dates: start: 20201105, end: 20210317
  7. GEMCITABINE HYDROCHLORIDE [Suspect]
     Active Substance: GEMCITABINE HYDROCHLORIDE
     Dosage: UNK UNK, UNKNOWN FREQ.
     Route: 065
     Dates: start: 20220106, end: 20220309
  8. CARBOPLATIN [Suspect]
     Active Substance: CARBOPLATIN
     Indication: Bladder cancer
     Dosage: UNK UNK, UNKNOWN FREQ.
     Route: 065
     Dates: start: 20201105, end: 20210317
  9. CARBOPLATIN [Suspect]
     Active Substance: CARBOPLATIN
     Dosage: UNK UNK, UNKNOWN FREQ.
     Route: 065
     Dates: start: 20220106, end: 20220309
  10. PEMBROLIZUMAB [Suspect]
     Active Substance: PEMBROLIZUMAB
     Indication: Bladder cancer
     Dosage: UNK UNK, UNKNOWN FREQ.
     Route: 065
     Dates: start: 20210603, end: 20211229
  11. ZINC [Concomitant]
     Active Substance: PYRITHIONE ZINC\ZINC\ZINC CHLORIDE
     Indication: Taste disorder
     Route: 048
     Dates: start: 20220616
  12. METHYLCOBALAMIN [Concomitant]
     Active Substance: METHYLCOBALAMIN
     Indication: Neuropathy peripheral
     Route: 048
     Dates: start: 20220721

REACTIONS (4)
  - Pulmonary toxicity [Recovering/Resolving]
  - Neuropathy peripheral [Not Recovered/Not Resolved]
  - Dysphonia [Recovering/Resolving]
  - Inappropriate schedule of product administration [Unknown]

NARRATIVE: CASE EVENT DATE: 20220428
